FAERS Safety Report 5744409-2 (Version None)
Quarter: 2008Q2

REPORT INFORMATION
  Report Type: 
  Country: None (occurrence: None)
  Receive Date: 20080520
  Receipt Date: 20080514
  Transmission Date: 20081010
  Serious: Yes (Hospitalization)
  Sender: FDA-Public Use
  Company Number: FR-ELI_LILLY_AND_COMPANY-FR200805001298

PATIENT
  Sex: Female
  Weight: 95 kg

DRUGS (7)
  1. BYETTA [Suspect]
     Indication: TYPE 2 DIABETES MELLITUS
     Dosage: 5 UG, 2/D
     Route: 058
     Dates: start: 20080501
  2. GLUCOPHAGE [Concomitant]
     Indication: TYPE 2 DIABETES MELLITUS
     Route: 048
  3. AMAREL [Concomitant]
     Indication: TYPE 2 DIABETES MELLITUS
     Route: 048
  4. GLUCOR [Concomitant]
     Indication: TYPE 2 DIABETES MELLITUS
     Route: 048
  5. COAPROVEL [Concomitant]
     Indication: HYPERTENSION
     Route: 048
  6. CRESTOR [Concomitant]
  7. MOTILIUM [Concomitant]

REACTIONS (10)
  - CARDIAC FAILURE [None]
  - DEHYDRATION [None]
  - DIABETIC KETOACIDOSIS [None]
  - DIARRHOEA [None]
  - HYPOVOLAEMIC SHOCK [None]
  - LACTIC ACIDOSIS [None]
  - METABOLIC ACIDOSIS [None]
  - NAUSEA [None]
  - RENAL FAILURE ACUTE [None]
  - VOMITING [None]
